FAERS Safety Report 16090726 (Version 2)
Quarter: 2019Q2

REPORT INFORMATION
  Report Type: Spontaneous
  Country: US (occurrence: US)
  Receive Date: 20190319
  Receipt Date: 20190404
  Transmission Date: 20190711
  Serious: Yes (Hospitalization)
  Sender: FDA-Public Use
  Company Number: US-ACTELION-A-NJ2019-187573

PATIENT
  Sex: Female

DRUGS (13)
  1. ZANTAC [Concomitant]
     Active Substance: RANITIDINE HYDROCHLORIDE
  2. SPIRONOLACTONE. [Concomitant]
     Active Substance: SPIRONOLACTONE
  3. DEMADEX [Concomitant]
     Active Substance: TORSEMIDE
  4. REVATIO [Concomitant]
     Active Substance: SILDENAFIL CITRATE
  5. OPSUMIT [Suspect]
     Active Substance: MACITENTAN
     Indication: PULMONARY ARTERIAL HYPERTENSION
     Dosage: 10 MG, QD
     Route: 048
     Dates: start: 20181130
  6. SYNTHROID [Concomitant]
     Active Substance: LEVOTHYROXINE SODIUM
  7. FLONASE [Concomitant]
     Active Substance: FLUTICASONE PROPIONATE
  8. ASPIRIN. [Concomitant]
     Active Substance: ASPIRIN
  9. GLIPIZIDE. [Concomitant]
     Active Substance: GLIPIZIDE
  10. METOLAZONE. [Concomitant]
     Active Substance: METOLAZONE
  11. ALBUTEROL. [Concomitant]
     Active Substance: ALBUTEROL
  12. ATORVASTATIN [Concomitant]
     Active Substance: ATORVASTATIN
  13. HYDRALAZINE [Concomitant]
     Active Substance: HYDRALAZINE HYDROCHLORIDE

REACTIONS (5)
  - Fluid overload [Recovered/Resolved]
  - Oedema [Recovered/Resolved]
  - Hypervolaemia [Recovered/Resolved]
  - Cough [Recovered/Resolved]
  - Syncope [Recovered/Resolved]
